FAERS Safety Report 4849259-7 (Version None)
Quarter: 2005Q4

REPORT INFORMATION
  Report Type: 
  Country: None (occurrence: None)
  Receive Date: 20051207
  Receipt Date: 20051205
  Transmission Date: 20060501
  Serious: Yes (Death, Life-Threatening, Hospitalization)
  Sender: FDA-Public Use
  Company Number: OXYA20050012

PATIENT
  Age: 52 Year
  Sex: Male

DRUGS (4)
  1. OXYCODONE/APAP [Suspect]
     Dosage: PO
     Route: 048
     Dates: start: 20040101, end: 20040101
  2. ACETAMINOPHEN /CODEINE [Suspect]
     Dosage: PO
     Route: 048
  3. DIAZEPAM [Suspect]
     Dosage: PO
     Route: 048
     Dates: start: 20040101, end: 20040101
  4. DIPYRIDAMOLE [Suspect]
     Dosage: PO
     Route: 048
     Dates: start: 20040101, end: 20040101

REACTIONS (5)
  - ALANINE AMINOTRANSFERASE INCREASED [None]
  - DEPRESSED LEVEL OF CONSCIOUSNESS [None]
  - DIALYSIS [None]
  - MULTIPLE DRUG OVERDOSE [None]
  - SUICIDE ATTEMPT [None]
